FAERS Safety Report 25990761 (Version 1)
Quarter: 2025Q4

REPORT INFORMATION
  Report Type: Spontaneous
  Country: CN (occurrence: CN)
  Receive Date: 20251103
  Receipt Date: 20251103
  Transmission Date: 20260118
  Serious: Yes (Hospitalization)
  Sender: NOVARTIS
  Company Number: CN-002147023-NVSC2025CN166505

PATIENT
  Age: 53 Year
  Sex: Female
  Weight: 51 kg

DRUGS (1)
  1. TABRECTA [Suspect]
     Active Substance: CAPMATINIB
     Indication: Lung carcinoma cell type unspecified recurrent
     Dosage: 2 DOSAGE FORM, BID
     Route: 048
     Dates: start: 20250927, end: 20251019

REACTIONS (5)
  - Hypersensitivity [Recovering/Resolving]
  - Cardiac discomfort [Recovering/Resolving]
  - Peripheral swelling [Unknown]
  - Oedema peripheral [Unknown]
  - Face oedema [Recovering/Resolving]

NARRATIVE: CASE EVENT DATE: 20251019
